FAERS Safety Report 10589781 (Version 1)
Quarter: 2014Q4

REPORT INFORMATION
  Report Type: Spontaneous
  Country: US (occurrence: None)
  Receive Date: 20141117
  Receipt Date: 20141117
  Transmission Date: 20150529
  Serious: Yes (Other)
  Sender: FDA-Public Use
  Company Number: None

PATIENT
  Age: 59 Year
  Sex: Male

DRUGS (1)
  1. TRIMIX [Suspect]
     Active Substance: ALPROSTADIL\PAPAVERINE\PHENTOLAMINE
     Indication: ERECTILE DYSFUNCTION
     Dosage: 0.08ML PRN/AS NEEDED INTRACAVERNOSAL
     Dates: start: 20141026, end: 20141027

REACTIONS (1)
  - Erection increased [None]

NARRATIVE: CASE EVENT DATE: 20141026
